FAERS Safety Report 7031561-4 (Version None)
Quarter: 2010Q4

REPORT INFORMATION
  Report Type: 
  Country: None (occurrence: None)
  Receive Date: 20101006
  Receipt Date: 20101006
  Transmission Date: 20110411
  Serious: No
  Sender: FDA-Public Use
  Company Number: None

PATIENT
  Sex: Male
  Weight: 56.6996 kg

DRUGS (1)
  1. TARGRETIN [Suspect]
     Indication: T-CELL LYMPHOMA
     Dosage: 375MG DAILY PO, ABOUT 12 YEARS
     Route: 048

REACTIONS (2)
  - PIGMENTATION DISORDER [None]
  - SQUAMOUS CELL CARCINOMA [None]
